FAERS Safety Report 5123543-4 (Version None)
Quarter: 2006Q3

REPORT INFORMATION
  Report Type: 
  Country: None (occurrence: None)
  Receive Date: 20060801
  Receipt Date: 20060615
  Transmission Date: 20061208
  Serious: Yes (Death)
  Sender: FDA-Public Use
  Company Number: 2005013565

PATIENT
  Sex: Male
  Weight: 52.6173 kg

DRUGS (14)
  1. CAMPTOSAR [Suspect]
     Indication: COLON CANCER METASTATIC
     Dosage: 190 MG (190 MG,INTERVAL: EVERY WEEK)
     Dates: start: 20041207
  2. ZOFRAN [Concomitant]
  3. REGLAN [Concomitant]
  4. FAMOTIDINE [Concomitant]
  5. BENADRYL [Concomitant]
  6. PROMETHAZINE [Concomitant]
  7. LEUCOVORIN CALCIUM [Concomitant]
  8. FLUOROURACIL [Concomitant]
  9. AVASTIN [Concomitant]
  10. LOPERAMIDE HCL [Concomitant]
  11. LOMOTIL [Concomitant]
  12. SODIUM CHLORIDE [Concomitant]
  13. ATROPINE [Concomitant]
  14. LASIX [Concomitant]

REACTIONS (5)
  - ABDOMINAL PAIN [None]
  - ABDOMINAL RIGIDITY [None]
  - ASCITES [None]
  - COLON CANCER METASTATIC [None]
  - DISEASE PROGRESSION [None]
